FAERS Safety Report 4359521-2 (Version None)
Quarter: 2004Q2

REPORT INFORMATION
  Report Type: 
  Country: None (occurrence: None)
  Receive Date: 20040512
  Receipt Date: 20040427
  Transmission Date: 20050107
  Serious: Yes (Other)
  Sender: FDA-Public Use
  Company Number: USA040362266

PATIENT
  Age: 29 Year
  Sex: Female
  Weight: 77 kg

DRUGS (3)
  1. ZYPREXA [Suspect]
     Indication: BIPOLAR DISORDER
     Dosage: 10 MG DAY
     Dates: start: 20040218
  2. ZOLOFT [Concomitant]
  3. WELLBUTRIN [Concomitant]

REACTIONS (4)
  - COMPLICATIONS OF MATERNAL EXPOSURE TO THERAPEUTIC DRUGS [None]
  - INDUCED LABOUR [None]
  - PRE-ECLAMPSIA [None]
  - RED BLOOD CELL COUNT INCREASED [None]
